FAERS Safety Report 12461459 (Version 2)
Quarter: 2016Q3

REPORT INFORMATION
  Report Type: Report from Study
  Country: CA (occurrence: CA)
  Receive Date: 20160613
  Receipt Date: 20160722
  Transmission Date: 20161109
  Serious: Yes (Other)
  Sender: FDA-Public Use
  Company Number: CA-009507513-1606CAN004517

PATIENT
  Sex: Female
  Weight: 71 kg

DRUGS (2)
  1. ALBENDAZOLE [Concomitant]
     Active Substance: ALBENDAZOLE
     Dosage: UNK
     Route: 048
  2. IVERMECTIN. [Suspect]
     Active Substance: IVERMECTIN
     Indication: STRONGYLOIDIASIS
     Dosage: 14.2 MG, QD
     Route: 048
     Dates: start: 20160608

REACTIONS (5)
  - Lung disorder [Recovering/Resolving]
  - Encephalopathy [Unknown]
  - Critical illness [Unknown]
  - Drug ineffective [Unknown]
  - Diarrhoea [Recovering/Resolving]
